FAERS Safety Report 22270402 (Version 1)
Quarter: 2023Q2

REPORT INFORMATION
  Report Type: Spontaneous
  Country: US (occurrence: None)
  Receive Date: 20230429
  Receipt Date: 20230429
  Transmission Date: 20230722
  Serious: Yes (Hospitalization)
  Sender: FDA-Public Use
  Company Number: None

PATIENT
  Age: 22 Year
  Sex: Male
  Weight: 78.75 kg

DRUGS (2)
  1. .DELTA.8-TETRAHYDROCANNABINOL\HERBALS [Suspect]
     Active Substance: .DELTA.8-TETRAHYDROCANNABINOL\HERBALS
     Indication: Anxiety
     Dosage: FREQUENCY : AS NEEDED;?
     Route: 048
     Dates: start: 20230427, end: 20230427
  2. Air Pro Inhaler [Concomitant]

REACTIONS (6)
  - Feeling abnormal [None]
  - Abnormal behaviour [None]
  - Confusional state [None]
  - Depression [None]
  - Anxiety [None]
  - Substance use [None]

NARRATIVE: CASE EVENT DATE: 20230427
